FAERS Safety Report 12231867 (Version 1)
Quarter: 2016Q2

REPORT INFORMATION
  Report Type: Spontaneous
  Country: US (occurrence: US)
  Receive Date: 20160401
  Receipt Date: 20160401
  Transmission Date: 20160815
  Serious: Yes (Other)
  Sender: FDA-Public Use
  Company Number: US-ABBVIE-16P-163-1593682-00

PATIENT
  Sex: Female
  Weight: 46.31 kg

DRUGS (1)
  1. CREON [Suspect]
     Active Substance: PANCRELIPASE AMYLASE\PANCRELIPASE LIPASE\PANCRELIPASE PROTEASE
     Indication: PRODUCT USED FOR UNKNOWN INDICATION
     Route: 048

REACTIONS (8)
  - Pancreaticoduodenectomy [Unknown]
  - Abdominal discomfort [Not Recovered/Not Resolved]
  - Weight decreased [Recovered/Resolved]
  - Fluid intake reduced [Recovered/Resolved]
  - Product size issue [Unknown]
  - Wound [Unknown]
  - Feeding disorder [Recovered/Resolved]
  - Depression [Unknown]
